FAERS Safety Report 8814477 (Version 1)
Quarter: 2012Q4

REPORT INFORMATION
  Report Type: Spontaneous
  Country: US (occurrence: None)
  Receive Date: 20120927
  Receipt Date: 20120927
  Transmission Date: 20130627
  Serious: Yes (Other)
  Sender: FDA-Public Use
  Company Number: None

PATIENT
  Sex: Male

DRUGS (2)
  1. TEMODAR [Suspect]
     Indication: BRAIN TUMOR
     Route: 048
     Dates: start: 20120121
  2. TEMODAR [Suspect]
     Indication: BRAIN TUMOR
     Dates: start: 20120926

REACTIONS (1)
  - Drug resistance [None]
